FAERS Safety Report 6093492-6 (Version None)
Quarter: 2009Q1

REPORT INFORMATION
  Report Type: 
  Country: None (occurrence: None)
  Receive Date: 20090226
  Receipt Date: 20090218
  Transmission Date: 20090719
  Serious: Yes (Other)
  Sender: FDA-Public Use
  Company Number: BR-AVENTIS-200911644GDDC

PATIENT
  Sex: Female

DRUGS (6)
  1. ARAVA [Suspect]
     Dosage: DOSE: 5 TABLETS
     Route: 048
     Dates: start: 20060101, end: 20060101
  2. ARAVA [Suspect]
     Dosage: DOSE: 1 TABLET
     Route: 048
     Dates: start: 20060101, end: 20080101
  3. PREDNISONE [Suspect]
     Dosage: DOSE: UNK
     Dates: start: 20060101
  4. ANAFRANIL [Concomitant]
     Indication: DEPRESSION
     Dosage: DOSE: UNK
  5. RIVOTRIL [Concomitant]
     Indication: INSOMNIA
     Dosage: DOSE: UNK
  6. UNKNOWN DRUG [Concomitant]
     Dosage: DOSE: UNK

REACTIONS (7)
  - ABDOMINAL DISTENSION [None]
  - DECREASED APPETITE [None]
  - FEELING ABNORMAL [None]
  - HEPATIC ENZYME INCREASED [None]
  - HEPATITIS [None]
  - HEPATOMEGALY [None]
  - NAUSEA [None]
